FAERS Safety Report 6278104-0 (Version None)
Quarter: 2009Q3

REPORT INFORMATION
  Report Type: 
  Country: None (occurrence: None)
  Receive Date: 20090722
  Receipt Date: 20090713
  Transmission Date: 20100115
  Serious: Yes (Hospitalization, Other)
  Sender: FDA-Public Use
  Company Number: US-ELI_LILLY_AND_COMPANY-US200905004927

PATIENT
  Sex: Female
  Weight: 79.365 kg

DRUGS (10)
  1. BYETTA [Suspect]
     Indication: TYPE 2 DIABETES MELLITUS
     Dosage: 5 UG, 2/D
     Route: 058
     Dates: start: 20050101, end: 20050101
  2. BYETTA [Suspect]
     Dosage: 10 UG, 2/D
     Route: 058
     Dates: start: 20050101, end: 20080601
  3. BYETTA [Suspect]
     Dosage: 10 UG, 2/D
     Route: 058
     Dates: start: 20090101
  4. ACTOS [Concomitant]
     Indication: TYPE 2 DIABETES MELLITUS
     Dosage: 15 MG, DAILY (1/D)
  5. AMARYL [Concomitant]
     Indication: BLOOD GLUCOSE INCREASED
     Dosage: 1 MG, DAILY (1/D)
  6. SYNTHROID [Concomitant]
     Indication: THYROID DISORDER
     Dosage: 0.112 MG, UNKNOWN
  7. NEURONTIN [Concomitant]
     Dosage: 100 MG, 3/D
  8. ZETIA [Concomitant]
     Dosage: UNK, DAILY (1/D)
  9. PROTONIX [Concomitant]
     Dosage: 40 MG, UNKNOWN
  10. BENICAR HCT [Concomitant]
     Indication: BLOOD PRESSURE INCREASED
     Dosage: UNK, DAILY (1/D)

REACTIONS (11)
  - BLOOD GLUCOSE DECREASED [None]
  - BLOOD MAGNESIUM DECREASED [None]
  - COLD SWEAT [None]
  - COMMUNICATION DISORDER [None]
  - DISTURBANCE IN ATTENTION [None]
  - DIZZINESS [None]
  - FEELING HOT [None]
  - MALAISE [None]
  - METASTASES TO LIVER [None]
  - NAUSEA [None]
  - OVARIAN EPITHELIAL CANCER [None]
